FAERS Safety Report 11159255 (Version 2)
Quarter: 2015Q3

REPORT INFORMATION
  Report Type: Spontaneous
  Country: JP (occurrence: JP)
  Receive Date: 20150603
  Receipt Date: 20150706
  Transmission Date: 20151125
  Serious: Yes (Hospitalization, Other)
  Sender: FDA-Public Use
  Company Number: JP-GLAXOSMITHKLINE-JP2015JPN000269

PATIENT
  Age: 38 Year
  Sex: Female
  Weight: 57 kg

DRUGS (2)
  1. LAMICTAL [Suspect]
     Active Substance: LAMOTRIGINE
     Dosage: 50 MG, QD
     Route: 048
     Dates: start: 20131122, end: 20131127
  2. LAMICTAL [Suspect]
     Active Substance: LAMOTRIGINE
     Indication: DEPRESSION
     Dosage: 25 MG, QD
     Route: 048
     Dates: start: 20131112, end: 20131121

REACTIONS (24)
  - Epidermal necrosis [Unknown]
  - Rash [Recovering/Resolving]
  - Corneal disorder [Recovering/Resolving]
  - Enanthema [Recovering/Resolving]
  - Erythema of eyelid [Recovering/Resolving]
  - Perivascular dermatitis [Unknown]
  - Conjunctival hyperaemia [Recovering/Resolving]
  - Hypophagia [Unknown]
  - Rash [Recovering/Resolving]
  - Rash maculo-papular [Recovering/Resolving]
  - Erythema [Unknown]
  - Oropharyngeal pain [Unknown]
  - Mouth ulceration [Recovering/Resolving]
  - Vulvovaginal erythema [Recovering/Resolving]
  - Scab [Unknown]
  - Oral mucosal eruption [Recovering/Resolving]
  - Eye discharge [Unknown]
  - Conjunctivitis [Recovering/Resolving]
  - Apoptosis [Unknown]
  - Stevens-Johnson syndrome [Recovering/Resolving]
  - Pyrexia [Unknown]
  - Eyelid erosion [Recovering/Resolving]
  - Erythema [Recovering/Resolving]
  - Lip erosion [Recovering/Resolving]

NARRATIVE: CASE EVENT DATE: 20131125
